FAERS Safety Report 12807736 (Version 1)
Quarter: 2016Q4

REPORT INFORMATION
  Report Type: Spontaneous
  Country: US (occurrence: US)
  Receive Date: 20161004
  Receipt Date: 20161004
  Transmission Date: 20170207
  Serious: No
  Sender: FDA-Public Use
  Company Number: US-AMGEN-USASP2016043709

PATIENT
  Age: 55 Year
  Sex: Male

DRUGS (2)
  1. XTANDI [Suspect]
     Active Substance: ENZALUTAMIDE
     Indication: PRODUCT USED FOR UNKNOWN INDICATION
     Dosage: UNK
     Route: 048
     Dates: start: 201510
  2. XGEVA [Suspect]
     Active Substance: DENOSUMAB
     Indication: PROSTATE CANCER
     Dosage: 160 MG, QD
     Route: 065
     Dates: start: 201510

REACTIONS (3)
  - Impaired healing [Not Recovered/Not Resolved]
  - Insomnia [Not Recovered/Not Resolved]
  - Restless legs syndrome [Recovering/Resolving]

NARRATIVE: CASE EVENT DATE: 201510
